FAERS Safety Report 23231603 (Version 1)
Quarter: 2023Q4

REPORT INFORMATION
  Report Type: Report from Study
  Country: KR (occurrence: KR)
  Receive Date: 20231127
  Receipt Date: 20231127
  Transmission Date: 20240110
  Serious: Yes (Hospitalization)
  Sender: FDA-Public Use
  Company Number: KR-Eisai Medical Research-EC-2023-147800

PATIENT
  Age: 63 Year
  Sex: Female

DRUGS (11)
  1. LECANEMAB [Suspect]
     Active Substance: LECANEMAB
     Indication: Dementia Alzheimer^s type
     Route: 042
     Dates: start: 20190807, end: 20230118
  2. OLANZAPINE [Concomitant]
     Active Substance: OLANZAPINE
     Route: 048
     Dates: start: 20220612, end: 20230629
  3. MEMANTINE HYDROCHLORIDE [Concomitant]
     Active Substance: MEMANTINE HYDROCHLORIDE
     Indication: Dementia Alzheimer^s type
     Route: 048
     Dates: start: 20210820, end: 20230801
  4. MEMANTINE HYDROCHLORIDE [Concomitant]
     Active Substance: MEMANTINE HYDROCHLORIDE
     Route: 048
     Dates: start: 20230802
  5. CHOLINE ALFOSCERATE [Concomitant]
     Active Substance: CHOLINE ALFOSCERATE
     Indication: Dementia Alzheimer^s type
     Route: 048
     Dates: start: 20210820, end: 20221229
  6. QUETIAPINE [Concomitant]
     Active Substance: QUETIAPINE
     Indication: Neuropsychological symptoms
     Route: 048
     Dates: start: 2022, end: 20220830
  7. ESCITALOPRAM [Concomitant]
     Active Substance: ESCITALOPRAM OXALATE
     Indication: Neuropsychological symptoms
     Route: 048
     Dates: start: 20150401, end: 20230514
  8. MELAKING [Concomitant]
     Indication: Insomnia
     Route: 048
     Dates: start: 20210820
  9. WONDRON PATCH [Concomitant]
     Indication: Dementia Alzheimer^s type
     Route: 061
     Dates: start: 20221111, end: 20230514
  10. RISPIDON [Concomitant]
     Route: 048
     Dates: start: 20200824, end: 20221110
  11. DONERION PATCH [Concomitant]
     Indication: Dementia Alzheimer^s type
     Dosage: TWICE A WEEK
     Route: 061
     Dates: start: 20230113, end: 20230514

REACTIONS (1)
  - Amyloid related imaging abnormality-oedema/effusion [Recovered/Resolved]

NARRATIVE: CASE EVENT DATE: 20230118
